FAERS Safety Report 5566541-9 (Version None)
Quarter: 2007Q4

REPORT INFORMATION
  Report Type: 
  Country: None (occurrence: None)
  Receive Date: 20071219
  Receipt Date: 20071210
  Transmission Date: 20080405
  Serious: Yes (Other)
  Sender: FDA-Public Use
  Company Number: US-JNJFOC-20071100301

PATIENT
  Sex: Female
  Weight: 49.9 kg

DRUGS (5)
  1. DURAGESIC-100 [Suspect]
     Indication: PAIN
     Route: 062
  2. MULTI-VITAMIN [Suspect]
     Indication: DRUG USE FOR UNKNOWN INDICATION
     Route: 065
  3. TOPAMAX [Concomitant]
     Indication: MIGRAINE
     Route: 048
  4. NEURONTIN [Concomitant]
     Indication: NEURALGIA
     Route: 048
  5. PHENERGAN HCL [Concomitant]
     Indication: NAUSEA
     Dosage: TAKEN SINCE THE 1990S
     Route: 048

REACTIONS (2)
  - HYSTERECTOMY [None]
  - PRURITUS GENERALISED [None]
